FAERS Safety Report 22019802 (Version 2)
Quarter: 2023Q2

REPORT INFORMATION
  Report Type: Spontaneous
  Country: US (occurrence: US)
  Receive Date: 20230222
  Receipt Date: 20230419
  Transmission Date: 20230722
  Serious: No
  Sender: FDA-Public Use
  Company Number: US-BIOVITRUM-2023US00386

PATIENT
  Age: 2 Year
  Sex: Male

DRUGS (1)
  1. KINERET [Suspect]
     Active Substance: ANAKINRA
     Indication: Juvenile idiopathic arthritis
     Dosage: 30 MG DAILY
     Route: 058
     Dates: start: 20221215

REACTIONS (4)
  - Intentional product misuse [Unknown]
  - Stubbornness [Unknown]
  - Product dose omission issue [Unknown]
  - Trigger finger [Unknown]

NARRATIVE: CASE EVENT DATE: 20221215
